APPROVED DRUG PRODUCT: FLUOROURACIL
Active Ingredient: FLUOROURACIL
Strength: 500MG/10ML (50MG/ML)
Dosage Form/Route: INJECTABLE;INJECTION
Application: A040772 | Product #001
Applicant: EBEWE PHARMA GES MBH NFG KG
Approved: Aug 11, 2008 | RLD: No | RS: No | Type: DISCN